FAERS Safety Report 9542410 (Version 3)
Quarter: 2019Q3

REPORT INFORMATION
  Report Type: Spontaneous
  Country: JP (occurrence: JP)
  Receive Date: 20130923
  Receipt Date: 20190821
  Transmission Date: 20191005
  Serious: Yes (Hospitalization, Other)
  Sender: FDA-Public Use
  Company Number: JP-PFIZER INC-2013270479

PATIENT
  Age: 51 Year
  Sex: Female

DRUGS (7)
  1. LUTEINIZING HORMONE-RELEASING HORMONE ANALOGUES [Suspect]
     Active Substance: GONADORELIN
     Indication: HORMONE THERAPY
     Dosage: UNK
  2. TAMOXIFEN CITRATE. [Suspect]
     Active Substance: TAMOXIFEN CITRATE
     Indication: INVASIVE DUCTAL BREAST CARCINOMA
     Dosage: UNK UNK, CYCLIC
     Route: 048
  3. TRASTUZUMAB. [Suspect]
     Active Substance: TRASTUZUMAB
     Dosage: UNK
  4. DOCETAXEL. [Suspect]
     Active Substance: DOCETAXEL
     Indication: INVASIVE DUCTAL BREAST CARCINOMA
     Dosage: UNK, CYCLIC (TOTAL AMOUNT 1080 MG/M2)
  5. METASTRON [Suspect]
     Active Substance: STRONTIUM CHLORIDE SR-89
     Dosage: UNK
  6. CYCLOPHOSPHAMIDE. [Suspect]
     Active Substance: CYCLOPHOSPHAMIDE
     Indication: INVASIVE DUCTAL BREAST CARCINOMA
     Dosage: UNK, CYCLIC (TOTAL AMOUNT 3600 MG/M2)
  7. ADRIACIN [Suspect]
     Active Substance: DOXORUBICIN HYDROCHLORIDE
     Indication: INVASIVE DUCTAL BREAST CARCINOMA
     Dosage: UNK, CYCLIC (TOTAL AMOUNT 360 MG/M2)

REACTIONS (2)
  - Second primary malignancy [Recovering/Resolving]
  - Acute promyelocytic leukaemia [Recovering/Resolving]
